FAERS Safety Report 7950743-8 (Version None)
Quarter: 2011Q4

REPORT INFORMATION
  Report Type: 
  Country: None (occurrence: None)
  Receive Date: 20111125
  Receipt Date: 20111111
  Transmission Date: 20120403
  Serious: Yes (Other)
  Sender: FDA-Public Use
  Company Number: 2011SP053357

PATIENT
  Sex: Female

DRUGS (3)
  1. RIBAVIRIN [Suspect]
     Indication: HEPATITIS C
     Dates: start: 20110829, end: 20111101
  2. VICTRELIS [Suspect]
     Indication: HEPATITIS C
     Dates: start: 20111026, end: 20111101
  3. PEG-INTRON [Suspect]
     Indication: HEPATITIS C
     Dates: start: 20110829, end: 20111101

REACTIONS (15)
  - ASTHENIA [None]
  - DRUG INEFFECTIVE [None]
  - FATIGUE [None]
  - HEADACHE [None]
  - ANAEMIA [None]
  - ARTHRALGIA [None]
  - IMPAIRED SELF-CARE [None]
  - HEARING IMPAIRED [None]
  - DYSPNOEA [None]
  - EAR CONGESTION [None]
  - ABASIA [None]
  - BLOOD COUNT ABNORMAL [None]
  - HYPOPHAGIA [None]
  - NAUSEA [None]
  - COUGH [None]
